FAERS Safety Report 21768261 (Version 3)
Quarter: 2022Q4

REPORT INFORMATION
  Report Type: Spontaneous
  Country: ES (occurrence: ES)
  Receive Date: 20221222
  Receipt Date: 20221229
  Transmission Date: 20230113
  Serious: No
  Sender: FDA-Public Use
  Company Number: ES-TILLOMEDPR-2021-EPL-000942

PATIENT
  Age: 51 Year
  Sex: Male

DRUGS (12)
  1. CYTARABINE [Suspect]
     Active Substance: CYTARABINE
     Indication: Bone marrow conditioning regimen
     Dosage: 6 CYCLES (BEAM REGIMEN)
  2. CYTARABINE [Suspect]
     Active Substance: CYTARABINE
     Indication: Peripheral T-cell lymphoma unspecified stage IV
     Dosage: UNK (TRIPLE INTRATHECAL THERAPY)
     Route: 037
  3. METHOTREXATE SODIUM [Concomitant]
     Active Substance: METHOTREXATE SODIUM
     Indication: Peripheral T-cell lymphoma unspecified stage IV
     Dosage: UNK (TRIPLE INTRATHECAL THERAPY)
     Route: 037
  4. VINCRISTINE SULFATE [Concomitant]
     Active Substance: VINCRISTINE SULFATE
     Indication: Peripheral T-cell lymphoma unspecified stage IV
     Dosage: UNK, CYCLIC
  5. DOXORUBICIN HYDROCHLORIDE [Concomitant]
     Active Substance: DOXORUBICIN HYDROCHLORIDE
     Indication: Peripheral T-cell lymphoma unspecified stage IV
     Dosage: UNK, CYCLIC
  6. ETOPOSIDE [Concomitant]
     Active Substance: ETOPOSIDE
     Indication: Bone marrow conditioning regimen
     Dosage: 6 CYCLES (BEAM REGIMEN)
  7. ETOPOSIDE [Concomitant]
     Active Substance: ETOPOSIDE
     Indication: Peripheral T-cell lymphoma unspecified stage IV
     Dosage: UNK UNK, CYCLIC
  8. PREDNISONE [Concomitant]
     Active Substance: PREDNISONE
     Indication: Peripheral T-cell lymphoma unspecified stage IV
     Dosage: UNK, CYCLIC
  9. CYCLOPHOSPHAMIDE [Concomitant]
     Active Substance: CYCLOPHOSPHAMIDE
     Indication: Peripheral T-cell lymphoma unspecified stage IV
     Dosage: UNK UNK, CYCLIC
  10. CARMUSTINE [Concomitant]
     Active Substance: CARMUSTINE
     Indication: Bone marrow conditioning regimen
     Dosage: 570 MG/M2 (6 CYCLES) (BEAM REGIMEN)
  11. MELPHALAN [Concomitant]
     Active Substance: MELPHALAN
     Indication: Bone marrow conditioning regimen
     Dosage: 6 CYCLES (BEAM REGIMEN)
  12. HYDROCORTISONE [Concomitant]
     Active Substance: HYDROCORTISONE
     Indication: Peripheral T-cell lymphoma unspecified stage IV
     Dosage: UNK (TRIPLE INTRATHECAL THERAPY)
     Route: 037

REACTIONS (1)
  - Off label use [Unknown]
